FAERS Safety Report 10461794 (Version 1)
Quarter: 2014Q3

REPORT INFORMATION
  Report Type: Other
  Country: NL (occurrence: NL)
  Receive Date: 20140918
  Receipt Date: 20140918
  Transmission Date: 20150326
  Serious: Yes (Other)
  Sender: FDA-Public Use
  Company Number: NL-ASTELLAS-2014EU012495

PATIENT
  Age: 77 Year
  Sex: Male

DRUGS (2)
  1. NON SPECIFIED DRUG [Concomitant]
     Indication: PRODUCT USED FOR UNKNOWN INDICATION
     Dosage: 1 DF, THRICE DAILY 7 PIECES
     Dates: start: 20130910
  2. VESICARE [Suspect]
     Active Substance: SOLIFENACIN SUCCINATE
     Indication: MICTURITION DISORDER
     Dosage: UNK UNK, ONCE DAILY
     Route: 065
     Dates: start: 20140618, end: 20140708

REACTIONS (2)
  - Hypogeusia [Recovered/Resolved with Sequelae]
  - Dysphagia [Recovered/Resolved with Sequelae]

NARRATIVE: CASE EVENT DATE: 201407
